FAERS Safety Report 6133674-8 (Version None)
Quarter: 2009Q1

REPORT INFORMATION
  Report Type: 
  Country: None (occurrence: None)
  Receive Date: 20090326
  Receipt Date: 20090319
  Transmission Date: 20090719
  Serious: Yes (Hospitalization)
  Sender: FDA-Public Use
  Company Number: B0551338A

PATIENT
  Age: 65 Year
  Sex: Male
  Weight: 50 kg

DRUGS (8)
  1. SERETIDE [Suspect]
     Indication: CHRONIC OBSTRUCTIVE PULMONARY DISEASE
     Dosage: 250MCG TWICE PER DAY
     Route: 055
     Dates: start: 20081217, end: 20081217
  2. SPIRIVA [Concomitant]
     Indication: CHRONIC OBSTRUCTIVE PULMONARY DISEASE
     Route: 055
     Dates: start: 20081217, end: 20081217
  3. GLIMICRON [Concomitant]
     Indication: DIABETES MELLITUS
     Route: 048
  4. MIGLITOL [Concomitant]
     Indication: DIABETES MELLITUS
     Route: 048
  5. RENIVACE [Concomitant]
     Indication: HYPERTENSION
     Route: 048
  6. ASPIRIN [Concomitant]
     Indication: MYOCARDIAL INFARCTION
     Route: 048
  7. SIMVASTATIN [Concomitant]
     Route: 048
  8. PLETAL [Concomitant]
     Indication: MYOCARDIAL INFARCTION
     Route: 048

REACTIONS (10)
  - ANGINA PECTORIS [None]
  - BLOOD PRESSURE DECREASED [None]
  - CHEST PAIN [None]
  - COLD SWEAT [None]
  - DISCOMFORT [None]
  - MALAISE [None]
  - MYOCARDIAL INFARCTION [None]
  - PERIPHERAL COLDNESS [None]
  - SHOCK [None]
  - VOMITING [None]
